FAERS Safety Report 8907147 (Version 1)
Quarter: 2012Q4

REPORT INFORMATION
  Report Type: 
  Country: US (occurrence: US)
  Receive Date: 20121114
  Receipt Date: 20121114
  Transmission Date: 20130627
  Serious: No
  Sender: FDA-Public Use
  Company Number: US-009507513-1211USA002446

PATIENT
  Sex: Male

DRUGS (1)
  1. DULERA [Suspect]
     Indication: ASTHMA
     Dosage: 2 DF, q4h
     Route: 055
     Dates: end: 20121105

REACTIONS (2)
  - Drug ineffective [Unknown]
  - Overdose [Unknown]
